FAERS Safety Report 7126556-6 (Version None)
Quarter: 2010Q4

REPORT INFORMATION
  Report Type: 
  Country: None (occurrence: None)
  Receive Date: 20101129
  Receipt Date: 20101122
  Transmission Date: 20110411
  Serious: Yes (Hospitalization, Other)
  Sender: FDA-Public Use
  Company Number: US-PFIZER INC-2010154832

PATIENT
  Sex: Male
  Weight: 85 kg

DRUGS (5)
  1. VIAGRA [Suspect]
     Indication: SEXUAL DYSFUNCTION
     Dosage: 25 MG, AS NEEDED
     Route: 048
     Dates: end: 20090101
  2. COZAAR [Concomitant]
     Indication: HYPERTENSION
     Dosage: 50 MG, 1X/DAY
     Route: 048
  3. ACETYLSALICYLIC ACID [Concomitant]
     Indication: CARDIAC DISORDER
     Dosage: 81 MG, 1X/DAY
     Route: 048
  4. MULTI-VITAMINS [Concomitant]
     Indication: CARDIAC DISORDER
     Dosage: 1X/DAY
     Route: 048
  5. FISH OIL [Concomitant]
     Indication: CARDIAC DISORDER
     Dosage: 1X/DAY
     Route: 048

REACTIONS (4)
  - CARDIAC PACEMAKER INSERTION [None]
  - DEAFNESS TRANSITORY [None]
  - FEELING COLD [None]
  - SLEEP APNOEA SYNDROME [None]
